FAERS Safety Report 6194800-8 (Version None)
Quarter: 2009Q2

REPORT INFORMATION
  Report Type: 
  Country: None (occurrence: None)
  Receive Date: 20090515
  Receipt Date: 20090515
  Transmission Date: 20091009
  Serious: Yes (Other)
  Sender: FDA-Public Use
  Company Number: None

PATIENT
  Age: 23 Year
  Sex: Male
  Weight: 68 kg

DRUGS (21)
  1. ZOSERT [Suspect]
     Indication: DEPRESSION
     Dosage: 20 TO 275MG
  2. ZOSERT [Suspect]
     Indication: FEAR
     Dosage: 20 TO 275MG
  3. ZOSERT [Suspect]
     Indication: MALAISE
     Dosage: 20 TO 275MG
  4. ZOSERT [Suspect]
     Indication: MENTAL IMPAIRMENT
     Dosage: 20 TO 275MG
  5. ZOSERT [Suspect]
     Indication: SOCIAL AVOIDANT BEHAVIOUR
     Dosage: 20 TO 275MG
  6. ZOSERT [Suspect]
     Indication: SUICIDE ATTEMPT
     Dosage: 20 TO 275MG
  7. CLOFRANIL [Suspect]
     Dosage: 20 TO 275MG
  8. LONAZEP [Suspect]
     Dosage: 20 TO 275MG
  9. . [Concomitant]
  10. PAXIDEP [Concomitant]
  11. SIZODON [Concomitant]
  12. CLONOTRIL [Concomitant]
  13. LICAB [Concomitant]
  14. DUZELA [Concomitant]
  15. BETACAP [Concomitant]
  16. VENIZ [Concomitant]
  17. LICAB [Concomitant]
  18. ARPIZOL [Concomitant]
  19. PARADIZE [Concomitant]
  20. LITHORIL [Concomitant]
  21. EPILEX CHRONO [Concomitant]

REACTIONS (10)
  - DEPRESSION [None]
  - DIZZINESS [None]
  - DRUG INEFFECTIVE [None]
  - FEAR [None]
  - HEADACHE [None]
  - INSOMNIA [None]
  - NERVOUS SYSTEM DISORDER [None]
  - SOCIAL AVOIDANT BEHAVIOUR [None]
  - SOCIAL PHOBIA [None]
  - UNEVALUABLE EVENT [None]
